FAERS Safety Report 10956574 (Version 4)
Quarter: 2019Q1

REPORT INFORMATION
  Report Type: Report from Study
  Country: US (occurrence: US)
  Receive Date: 20150326
  Receipt Date: 20190207
  Transmission Date: 20190417
  Serious: Yes (Other)
  Sender: FDA-Public Use
  Company Number: US-SA-2013SA129999

PATIENT
  Age: 60 Year
  Sex: Female

DRUGS (4)
  1. TERIFLUNOMIDE. [Suspect]
     Active Substance: TERIFLUNOMIDE
     Indication: MULTIPLE SCLEROSIS
     Dosage: 14 MG,QD
     Route: 048
     Dates: start: 20131125, end: 201312
  2. REBIF [Concomitant]
     Active Substance: INTERFERON BETA-1A
     Indication: MULTIPLE SCLEROSIS
     Dosage: UNK
     Dates: start: 20091201, end: 20131123
  3. TERIFLUNOMIDE. [Suspect]
     Active Substance: TERIFLUNOMIDE
     Dosage: 14 MG,QD
     Route: 048
     Dates: start: 201312
  4. TERIFLUNOMIDE. [Suspect]
     Active Substance: TERIFLUNOMIDE
     Dosage: 14 MG, QD
     Route: 048
     Dates: start: 2016

REACTIONS (20)
  - Pain in extremity [Unknown]
  - Asthenia [Unknown]
  - Hypertension [Not Recovered/Not Resolved]
  - Fall [Unknown]
  - Balance disorder [Not Recovered/Not Resolved]
  - Product dose omission [Unknown]
  - Unevaluable event [Unknown]
  - Candida infection [Unknown]
  - Muscle spasms [Unknown]
  - Multiple sclerosis relapse [Unknown]
  - Tendon rupture [Unknown]
  - Carpal tunnel syndrome [Unknown]
  - Malaise [Unknown]
  - Nasopharyngitis [Unknown]
  - Muscular weakness [Unknown]
  - Paraesthesia [Not Recovered/Not Resolved]
  - Burning sensation [Unknown]
  - Ill-defined disorder [Unknown]
  - Hypoaesthesia [Not Recovered/Not Resolved]
  - Surgery [Unknown]

NARRATIVE: CASE EVENT DATE: 2013
